FAERS Safety Report 10084303 (Version 1)
Quarter: 2014Q2

REPORT INFORMATION
  Report Type: Spontaneous
  Country: US (occurrence: None)
  Receive Date: 20140415
  Receipt Date: 20140415
  Transmission Date: 20141212
  Serious: Yes (Death)
  Sender: FDA-Public Use
  Company Number: ANI_2014_1360994

PATIENT
  Age: 41 Year
  Sex: Male

DRUGS (4)
  1. METOCLOPRAMIDE [Suspect]
  2. HEROIN [Concomitant]
  3. CLONAZEPAM [Concomitant]
  4. PROMETHAZINE [Concomitant]

REACTIONS (1)
  - Drug abuse [None]
